FAERS Safety Report 8482789-8 (Version None)
Quarter: 2012Q3

REPORT INFORMATION
  Report Type: 
  Country: None (occurrence: None)
  Receive Date: 20120702
  Receipt Date: 20120627
  Transmission Date: 20120928
  Serious: Yes (Hospitalization)
  Sender: FDA-Public Use
  Company Number: PHHY2010ES88209

PATIENT
  Age: 40 Year
  Sex: Male

DRUGS (3)
  1. CEFTRIAXONE [Suspect]
     Indication: STATUS EPILEPTICUS
     Dosage: 2 G, Q12H
     Route: 042
  2. METRONIDAZOLE [Suspect]
     Indication: STATUS EPILEPTICUS
     Dosage: 100 MG, Q12H
  3. PHENYTOIN [Suspect]
     Indication: STATUS EPILEPTICUS
     Dosage: 100 MG, Q12H

REACTIONS (8)
  - DRUG RASH WITH EOSINOPHILIA AND SYSTEMIC SYMPTOMS [None]
  - PRURITUS [None]
  - LYMPHADENOPATHY [None]
  - RASH ERYTHEMATOUS [None]
  - PYREXIA [None]
  - LYMPHOCYTE TRANSFORMATION TEST POSITIVE [None]
  - HEPATIC ENZYME INCREASED [None]
  - EOSINOPHILIA [None]
